FAERS Safety Report 4462970-5 (Version None)
Quarter: 2004Q3

REPORT INFORMATION
  Report Type: 
  Country: None (occurrence: None)
  Receive Date: 20040927
  Receipt Date: 20040914
  Transmission Date: 20050211
  Serious: Yes (Hospitalization)
  Sender: FDA-Public Use
  Company Number: 2004054169

PATIENT
  Age: 87 Year
  Sex: Female

DRUGS (2)
  1. LIPITOR [Suspect]
     Indication: DEMENTIA ALZHEIMER'S TYPE
     Dosage: 10 MG (10 MG, 1 IN 1 D), ORAL
     Route: 048
     Dates: start: 20030701, end: 20040501
  2. ASPIRIN [Concomitant]

REACTIONS (4)
  - BRAIN DAMAGE [None]
  - CEREBRAL ISCHAEMIA [None]
  - DEHYDRATION [None]
  - PNEUMONIA [None]
